FAERS Safety Report 4954852-7 (Version None)
Quarter: 2006Q1

REPORT INFORMATION
  Report Type: 
  Country: None (occurrence: None)
  Receive Date: 20060327
  Receipt Date: 20051220
  Transmission Date: 20060701
  Serious: Yes (Hospitalization)
  Sender: FDA-Public Use
  Company Number: US-MERCK-0512USA03331

PATIENT
  Age: 65 Year
  Sex: Male
  Weight: 86 kg

DRUGS (6)
  1. VIOXX [Suspect]
     Indication: ARTHRITIS
     Route: 048
     Dates: start: 20000901, end: 20040901
  2. ATENOLOL [Concomitant]
     Route: 065
     Dates: end: 20010520
  3. PAXIL [Concomitant]
     Indication: DEPRESSION
     Route: 065
  4. ASPIRIN [Concomitant]
     Route: 065
  5. HYDROCHLOROTHIAZIDE [Concomitant]
     Route: 065
  6. PRILOSEC [Concomitant]
     Route: 065

REACTIONS (50)
  - ACTINIC KERATOSIS [None]
  - ANGINA PECTORIS [None]
  - ANGINA UNSTABLE [None]
  - ARTERIAL STENOSIS LIMB [None]
  - ARTERIOSCLEROSIS [None]
  - ARTHROPATHY [None]
  - BLOOD CHOLESTEROL INCREASED [None]
  - BLOOD PRESSURE INCREASED [None]
  - BRADYCARDIA [None]
  - BRONCHITIS ACUTE [None]
  - BUNDLE BRANCH BLOCK RIGHT [None]
  - BURNING SENSATION [None]
  - CEREBROVASCULAR ACCIDENT [None]
  - CERVICAL VERTEBRAL FRACTURE [None]
  - CHEST PAIN [None]
  - CONSTIPATION [None]
  - CORONARY ARTERY DISEASE [None]
  - DIZZINESS [None]
  - DYSARTHRIA [None]
  - DYSKINESIA [None]
  - ERECTILE DYSFUNCTION [None]
  - FACIAL PALSY [None]
  - FATIGUE [None]
  - FLUSHING [None]
  - HYPERTENSION [None]
  - INSOMNIA [None]
  - IRRITABLE BOWEL SYNDROME [None]
  - LIVER FUNCTION TEST ABNORMAL [None]
  - MITRAL VALVE INCOMPETENCE [None]
  - MUSCLE SPASMS [None]
  - MYOCARDIAL INFARCTION [None]
  - MYOCARDIAL ISCHAEMIA [None]
  - NECK PAIN [None]
  - NERVE COMPRESSION [None]
  - NON-CARDIAC CHEST PAIN [None]
  - ONYCHOMYCOSIS [None]
  - PALPITATIONS [None]
  - RADICULOPATHY [None]
  - RHINITIS ALLERGIC [None]
  - RIGHT VENTRICULAR FAILURE [None]
  - SENSATION OF HEAVINESS [None]
  - SICK SINUS SYNDROME [None]
  - SINUS BRADYCARDIA [None]
  - SUPRAVENTRICULAR EXTRASYSTOLES [None]
  - TACHYCARDIA [None]
  - TRANSIENT ISCHAEMIC ATTACK [None]
  - TREATMENT NONCOMPLIANCE [None]
  - URINARY RETENTION [None]
  - VENTRICULAR HYPERTROPHY [None]
  - VISION BLURRED [None]
